FAERS Safety Report 4961205-4 (Version None)
Quarter: 2006Q1

REPORT INFORMATION
  Report Type: 
  Country: None (occurrence: None)
  Receive Date: 20060201
  Receipt Date: 20051024
  Transmission Date: 20060701
  Serious: No
  Sender: FDA-Public Use
  Company Number: 2005PV003743

PATIENT
  Age: 55 Year
  Sex: Female
  Weight: 107.0489 kg

DRUGS (5)
  1. BYETTA [Suspect]
     Indication: DIABETES MELLITUS NON-INSULIN-DEPENDENT
     Dosage: 5 MCG;BID;SC
     Route: 058
     Dates: start: 20051010
  2. METAGLIP [Concomitant]
  3. LEVOXYL [Concomitant]
  4. AVALIDE [Concomitant]
  5. FOSAMAX [Concomitant]

REACTIONS (5)
  - ABDOMINAL PAIN UPPER [None]
  - CONSTIPATION [None]
  - DIARRHOEA [None]
  - INJECTION SITE BRUISING [None]
  - PAINFUL DEFAECATION [None]
